FAERS Safety Report 14925402 (Version 1)
Quarter: 2018Q2

REPORT INFORMATION
  Report Type: Spontaneous
  Country: JP (occurrence: JP)
  Receive Date: 20180522
  Receipt Date: 20180522
  Transmission Date: 20180711
  Serious: Yes (Hospitalization, Other)
  Sender: FDA-Public Use
  Company Number: JP-MYLANLABS-2018M1034102

PATIENT
  Age: 31 Year
  Sex: Female

DRUGS (5)
  1. BETAMETHASONE. [Suspect]
     Active Substance: BETAMETHASONE
     Indication: SYSTEMIC LUPUS ERYTHEMATOSUS
     Route: 065
  2. METHYLPREDNISOLONE. [Suspect]
     Active Substance: METHYLPREDNISOLONE
     Indication: SYSTEMIC LUPUS ERYTHEMATOSUS
     Route: 065
  3. TACROLIMUS. [Suspect]
     Active Substance: TACROLIMUS
     Indication: SYSTEMIC LUPUS ERYTHEMATOSUS
     Route: 065
  4. BETAMETHASONE. [Suspect]
     Active Substance: BETAMETHASONE
     Dosage: HIGH DOSE
     Route: 065
  5. CYCLOPHOSPHAMIDE. [Suspect]
     Active Substance: CYCLOPHOSPHAMIDE
     Indication: SYSTEMIC LUPUS ERYTHEMATOSUS
     Dosage: PULSE THERAPY
     Route: 065

REACTIONS (5)
  - Intestinal perforation [Recovering/Resolving]
  - Cytomegalovirus enterocolitis [Recovering/Resolving]
  - Altered state of consciousness [Recovered/Resolved]
  - Haematochezia [Recovering/Resolving]
  - Disseminated intravascular coagulation [Recovered/Resolved]
